FAERS Safety Report 23059652 (Version 1)
Quarter: 2023Q4

REPORT INFORMATION
  Report Type: Spontaneous
  Country: CN (occurrence: CN)
  Receive Date: 20231012
  Receipt Date: 20231012
  Transmission Date: 20240109
  Serious: Yes (Other)
  Sender: FDA-Public Use
  Company Number: CN-SA-SAC20231009001472

PATIENT
  Age: 75 Year
  Sex: Female
  Weight: 62 kg

DRUGS (1)
  1. ZOLPIDEM TARTRATE [Suspect]
     Active Substance: ZOLPIDEM TARTRATE
     Indication: Sleep disorder
     Dosage: 10 DF, QD
     Route: 048
     Dates: start: 20230926, end: 20230927

REACTIONS (3)
  - Dyskinesia [Recovering/Resolving]
  - Hallucination [Recovering/Resolving]
  - Mental status changes [Recovered/Resolved]

NARRATIVE: CASE EVENT DATE: 20230927
